FAERS Safety Report 7352726-8 (Version None)
Quarter: 2011Q1

REPORT INFORMATION
  Report Type: 
  Country: None (occurrence: None)
  Receive Date: 20110315
  Receipt Date: 20090128
  Transmission Date: 20110831
  Serious: Yes (Other)
  Sender: FDA-Public Use
  Company Number: FR-PFIZER INC-2009162649

PATIENT
  Sex: Male

DRUGS (2)
  1. WARFARIN [Suspect]
  2. INSPRA [Suspect]

REACTIONS (1)
  - CYANOSIS [None]
